FAERS Safety Report 8335038 (Version 9)
Quarter: 2013Q1

REPORT INFORMATION
  Report Type: Report from Study
  Country: GB (occurrence: GB)
  Receive Date: 20120112
  Receipt Date: 20130129
  Transmission Date: 20140127
  Serious: Yes (Death, Hospitalization)
  Sender: FDA-Public Use
  Company Number: GB-ROCHE-1029226

PATIENT
  Age: 59 Year
  Sex: Male
  Weight: 60 kg

DRUGS (10)
  1. VEMURAFENIB [Suspect]
     Indication: METASTATIC MALIGNANT MELANOMA
     Dosage: DATE OF LAST DOSE: 04 JAN. 2012
     Route: 048
     Dates: start: 20111215, end: 20120109
  2. LOPERAMIDE [Concomitant]
     Route: 065
     Dates: start: 20111218, end: 20120109
  3. METOCLOPRAMIDE [Concomitant]
     Route: 065
     Dates: start: 2010, end: 20120109
  4. GLICLAZIDE [Concomitant]
     Indication: TYPE 2 DIABETES MELLITUS
     Route: 065
     Dates: start: 2009, end: 20120109
  5. RAMIPRIL [Concomitant]
     Indication: HYPERTENSION
     Route: 065
     Dates: start: 2009, end: 20120109
  6. ATORVASTATIN [Concomitant]
     Route: 065
     Dates: start: 2009, end: 20120109
  7. OMEPRAZOLE [Concomitant]
     Route: 065
     Dates: start: 2009, end: 20120109
  8. MUCAINE [Concomitant]
     Route: 065
     Dates: start: 20110818, end: 20120109
  9. ORAMORPH [Concomitant]
     Route: 065
     Dates: start: 20110801, end: 20120109
  10. GABAPENTIN [Concomitant]
     Dosage: TOTAL DAILY DOSE:TBC
     Route: 065

REACTIONS (2)
  - Cardiogenic shock [Fatal]
  - Dizziness [Recovered/Resolved with Sequelae]
